FAERS Safety Report 8996117 (Version 1)
Quarter: 2013Q1

REPORT INFORMATION
  Report Type: Spontaneous
  Country: US (occurrence: US)
  Receive Date: 20130103
  Receipt Date: 20130103
  Transmission Date: 20140127
  Serious: No
  Sender: FDA-Public Use
  Company Number: US-ABBOTT-12P-163-0937765-00

PATIENT
  Sex: Male

DRUGS (6)
  1. SYNTHROID [Suspect]
     Indication: HYPOTHYROIDISM
     Dates: start: 1992, end: 201205
  2. SYNTHROID [Suspect]
     Indication: HYPOTHYROIDISM
     Dosage: 2.5 ONCE A DAY
     Dates: start: 201205
  3. METOPROLOL [Concomitant]
     Indication: HYPERTENSION
  4. AMLODIPINE [Concomitant]
     Indication: HYPERTENSION
  5. NEXIUM [Concomitant]
     Indication: GASTROOESOPHAGEAL REFLUX DISEASE
  6. XANAX [Concomitant]
     Indication: ANXIETY

REACTIONS (5)
  - Reaction to colouring [Unknown]
  - Hot flush [Not Recovered/Not Resolved]
  - Headache [Not Recovered/Not Resolved]
  - Palpitations [Recovered/Resolved]
  - Insomnia [Recovered/Resolved]
